FAERS Safety Report 13664889 (Version 1)
Quarter: 2017Q2

REPORT INFORMATION
  Report Type: Report from Study
  Country: GT (occurrence: GT)
  Receive Date: 20170619
  Receipt Date: 20170619
  Transmission Date: 20170830
  Serious: Yes (Hospitalization)
  Sender: FDA-Public Use
  Company Number: PHHY2017GT089261

PATIENT
  Age: 85 Year
  Sex: Female

DRUGS (2)
  1. PRETERAX [Suspect]
     Active Substance: INDAPAMIDE\PERINDOPRIL
     Indication: BLOOD PRESSURE INCREASED
     Dosage: UNK
     Route: 065
  2. VYMADA [Suspect]
     Active Substance: SACUBITRIL\VALSARTAN
     Indication: PRODUCT USED FOR UNKNOWN INDICATION
     Dosage: 50 MG, BID (ONE IN THE MORNING AND THE OTHER ONE AT NIGHT)
     Route: 065

REACTIONS (3)
  - Contraindicated product administered [Unknown]
  - Blood pressure increased [Unknown]
  - Swelling face [Unknown]
